FAERS Safety Report 25008106 (Version 1)
Quarter: 2025Q1

REPORT INFORMATION
  Report Type: Report from Study
  Country: ZA (occurrence: ZA)
  Receive Date: 20250225
  Receipt Date: 20250225
  Transmission Date: 20250408
  Serious: Yes (Other)
  Sender: ALEXION PHARMACEUTICALS
  Company Number: ZA-AstraZeneca-CH-00808481A

PATIENT
  Age: 67 Year

DRUGS (4)
  1. BUDESONIDE\FORMOTEROL [Suspect]
     Active Substance: BUDESONIDE\FORMOTEROL
     Indication: Asthma
  2. ZOLPIDEM TARTRATE [Concomitant]
     Active Substance: ZOLPIDEM TARTRATE
     Indication: African trypanosomiasis
  3. Lipogen [Concomitant]
     Indication: Blood cholesterol
  4. Omiflux [Concomitant]
     Indication: Gastrooesophageal reflux disease

REACTIONS (5)
  - Pain [Unknown]
  - Dysstasia [Unknown]
  - Frustration tolerance decreased [Unknown]
  - Hypersensitivity [Unknown]
  - Dry eye [Unknown]
